FAERS Safety Report 5191756-1 (Version None)
Quarter: 2006Q4

REPORT INFORMATION
  Report Type: 
  Country: None (occurrence: None)
  Receive Date: 20061219
  Receipt Date: 20061206
  Transmission Date: 20070319
  Serious: No
  Sender: FDA-Public Use
  Company Number: B0450565A

PATIENT
  Age: 44 Year
  Sex: Female

DRUGS (8)
  1. ALKERAN [Suspect]
     Indication: MULTIPLE MYELOMA
     Dosage: 200 MG/M2
  2. VINCRISTINE [Suspect]
     Dosage: INTRAVENOUS
     Route: 042
  3. DOXORUBICIN HYDROCHLORIDE [Suspect]
     Dosage: INTRAVENOUS
     Route: 042
  4. DEXAMETHASONE [Suspect]
     Dosage: INTRAVENOUS
     Route: 042
  5. PAMIDRONIC ACID (FORMULATION UNKNOWN) (PAMIDRONIC ACID) [Suspect]
     Dosage: 90 MG / INTRAVENOUS
     Route: 042
  6. ZOLEDRONATE [Concomitant]
  7. THALIDOMIDE [Concomitant]
  8. HEMATOPOETIC PROGENITOR CELLS HUMAN [Concomitant]

REACTIONS (2)
  - HYPOAESTHESIA [None]
  - OSTEONECROSIS [None]
